FAERS Safety Report 10331799 (Version 1)
Quarter: 2014Q3

REPORT INFORMATION
  Report Type: Spontaneous
  Country: IL (occurrence: IL)
  Receive Date: 20140722
  Receipt Date: 20140722
  Transmission Date: 20150326
  Serious: Yes (Congenital Anomaly, Other)
  Sender: FDA-Public Use
  Company Number: PHHY2014IL088711

PATIENT
  Sex: Female

DRUGS (3)
  1. LITHIUM [Suspect]
     Active Substance: LITHIUM CARBONATE
     Dosage: (MATERNAL DOSE: 750 MG/DAY)
     Route: 064
  2. METHYLPREDNISOLONE [Suspect]
     Active Substance: METHYLPREDNISOLONE
     Route: 064
  3. NEOMYCIN [Suspect]
     Active Substance: NEOMYCIN
     Route: 064

REACTIONS (4)
  - Autism spectrum disorder [Unknown]
  - Pelvi-ureteric obstruction [Unknown]
  - Hydronephrosis [Unknown]
  - Foetal exposure during pregnancy [Unknown]
